FAERS Safety Report 6243505-3 (Version None)
Quarter: 2009Q2

REPORT INFORMATION
  Report Type: 
  Country: None (occurrence: None)
  Receive Date: 20090618
  Receipt Date: 20081031
  Transmission Date: 20091009
  Serious: Yes (Disabling)
  Sender: FDA-Public Use
  Company Number: CIP08002082

PATIENT
  Age: 73 Year
  Sex: Female
  Weight: 60.3 kg

DRUGS (4)
  1. ACTONEL [Suspect]
     Indication: OSTEOPOROSIS
     Dosage: 35 MG ONCE WEEKLY, ORAL; 70 MG, 1/MONTH
     Route: 048
     Dates: start: 20030501, end: 20070601
  2. ACTONEL [Suspect]
     Indication: OSTEOPOROSIS
     Dosage: 35 MG ONCE WEEKLY, ORAL; 70 MG, 1/MONTH
     Route: 048
     Dates: start: 20070601, end: 20071101
  3. CALCIUM +D (CALCIUM ERGOCALCIFEROL) [Concomitant]
  4. LEVOTHROID [Concomitant]

REACTIONS (4)
  - MOUTH ULCERATION [None]
  - OSTEONECROSIS [None]
  - PRIMARY SEQUESTRUM [None]
  - STOMATITIS [None]
